FAERS Safety Report 15454287 (Version 1)
Quarter: 2018Q4

REPORT INFORMATION
  Report Type: Spontaneous
  Country: US (occurrence: US)
  Receive Date: 20181002
  Receipt Date: 20181002
  Transmission Date: 20190204
  Serious: No
  Sender: FDA-Public Use
  Company Number: US-BAUSCH-BL-2018-024589

PATIENT
  Age: 61 Year

DRUGS (2)
  1. ARESTIN [Suspect]
     Active Substance: MINOCYCLINE HYDROCHLORIDE
     Indication: ENDODONTIC PROCEDURE
  2. ARESTIN [Suspect]
     Active Substance: MINOCYCLINE HYDROCHLORIDE
     Indication: SKIN EXFOLIATION
     Dosage: 2 INJECTIONS, PLACED IN 5MM PERIODONTAL POCKETS, MICROSPHERES, USED ONLY ONCE
     Route: 065
     Dates: start: 20180829, end: 20180829

REACTIONS (2)
  - Throat tightness [Recovered/Resolved]
  - Erythema [Recovered/Resolved]

NARRATIVE: CASE EVENT DATE: 20180829
